FAERS Safety Report 22020614 (Version 1)
Quarter: 2023Q1

REPORT INFORMATION
  Report Type: Report from Study
  Country: CO (occurrence: CO)
  Receive Date: 20230222
  Receipt Date: 20230222
  Transmission Date: 20230418
  Serious: Yes (Life-Threatening, Hospitalization, Other)
  Sender: FDA-Public Use
  Company Number: CO-UCBSA-2023008734

PATIENT
  Age: 55 Year
  Sex: Male

DRUGS (1)
  1. CERTOLIZUMAB PEGOL [Suspect]
     Active Substance: CERTOLIZUMAB PEGOL
     Indication: Psoriasis
     Dosage: 400 MILLIGRAM, EV 2 WEEKS(QOW)
     Route: 058
     Dates: start: 20210816, end: 20220816

REACTIONS (4)
  - Cardio-respiratory arrest [Recovered/Resolved]
  - Arterial occlusive disease [Recovering/Resolving]
  - Catheterisation cardiac [Recovered/Resolved]
  - Intentional dose omission [Unknown]

NARRATIVE: CASE EVENT DATE: 20220830
